FAERS Safety Report 21234389 (Version 1)
Quarter: 2022Q3

REPORT INFORMATION
  Report Type: Spontaneous
  Country: US (occurrence: US)
  Receive Date: 20220819
  Receipt Date: 20220819
  Transmission Date: 20221027
  Serious: Yes (Hospitalization, Other)
  Sender: FDA-Public Use
  Company Number: US-AMGEN-USASP2022138828

PATIENT
  Age: 22 Year
  Sex: Male

DRUGS (5)
  1. RITUXIMAB [Suspect]
     Active Substance: RITUXIMAB
     Indication: Castleman^s disease
     Route: 065
  2. CYCLOPHOSPHAMIDE [Concomitant]
     Active Substance: CYCLOPHOSPHAMIDE
     Indication: Castleman^s disease
  3. DOXORUBICIN [Concomitant]
     Active Substance: DOXORUBICIN
     Indication: Castleman^s disease
  4. VINCRISTINE [Concomitant]
     Active Substance: VINCRISTINE
     Indication: Castleman^s disease
  5. PREDNISOLONE [Concomitant]
     Active Substance: PREDNISOLONE
     Indication: Castleman^s disease

REACTIONS (2)
  - Castleman^s disease [Unknown]
  - Off label use [Unknown]
